FAERS Safety Report 4674809-3 (Version None)
Quarter: 2005Q2

REPORT INFORMATION
  Report Type: 
  Country: None (occurrence: None)
  Receive Date: 20050526
  Receipt Date: 20050329
  Transmission Date: 20051028
  Serious: No
  Sender: FDA-Public Use
  Company Number: AU-SANOFI-SYNTHELABO-A01200501929

PATIENT
  Sex: Male

DRUGS (5)
  1. ELIGARD [Suspect]
     Indication: PROSTATE CANCER
     Route: 058
     Dates: start: 20040619, end: 20041029
  2. SERETIDE [Concomitant]
     Indication: DRUG USE FOR UNKNOWN INDICATION
     Dosage: 125MCG/25 MCG ONCE DAILY
     Route: 055
  3. ATROVENT NEBULES [Concomitant]
     Indication: DRUG USE FOR UNKNOWN INDICATION
     Route: 065
  4. VENTOLINE NEBULES [Concomitant]
     Indication: DRUG USE FOR UNKNOWN INDICATION
     Route: 065
  5. VENTOLINE INHALER [Concomitant]
     Indication: DRUG USE FOR UNKNOWN INDICATION
     Route: 055

REACTIONS (10)
  - BONE PAIN [None]
  - DIZZINESS [None]
  - FATIGUE [None]
  - GENITAL PRURITUS MALE [None]
  - HOT FLUSH [None]
  - MYALGIA [None]
  - PENILE INFECTION [None]
  - PENIS DISORDER [None]
  - TESTICULAR ATROPHY [None]
  - TREMOR [None]
